FAERS Safety Report 4759807-3 (Version None)
Quarter: 2005Q3

REPORT INFORMATION
  Report Type: 
  Country: None (occurrence: None)
  Receive Date: 20050831
  Receipt Date: 20050831
  Transmission Date: 20060218
  Serious: Yes (Death, Hospitalization)
  Sender: FDA-Public Use
  Company Number: None

PATIENT
  Age: 57 Year
  Sex: Male

DRUGS (17)
  1. AVASTIN [Suspect]
     Indication: MESOTHELIOMA
     Dosage: 15 MG/IV
     Route: 042
     Dates: start: 20050722, end: 20050812
  2. TARCEVA [Suspect]
     Indication: MESOTHELIOMA
     Dosage: 150 MG/ORAL
     Route: 048
     Dates: start: 20050722, end: 20050829
  3. ATIVAN [Concomitant]
  4. AMLODIPINE 5 [Concomitant]
  5. OXYCODONE HCL [Concomitant]
  6. ATROVENT [Concomitant]
  7. COLACE [Concomitant]
  8. ATARAX [Concomitant]
  9. FRAGMIN [Concomitant]
  10. SSI [Concomitant]
  11. NEXIUM [Concomitant]
  12. CEFTRIAXONE [Concomitant]
  13. AZITHROMYCIN [Concomitant]
  14. LISINOPRIL [Concomitant]
  15. OXYCONTIN [Concomitant]
  16. ALB NEBS [Concomitant]
  17. PREDNISONE TAB [Concomitant]

REACTIONS (2)
  - DISEASE PROGRESSION [None]
  - DYSPNOEA [None]
